FAERS Safety Report 11371789 (Version 1)
Quarter: 2015Q3

REPORT INFORMATION
  Report Type: Report from Study
  Country: IT (occurrence: IT)
  Receive Date: 20150812
  Receipt Date: 20150812
  Transmission Date: 20151125
  Serious: Yes (Other)
  Sender: FDA-Public Use
  Company Number: IT-B.I. PHARMACEUTICALS,INC./RIDGEFIELD-2015-BI-43909GD

PATIENT
  Age: 75 Year
  Sex: Female

DRUGS (2)
  1. LEVODOPA [Concomitant]
     Active Substance: LEVODOPA
     Indication: PARKINSON^S DISEASE
     Dosage: L-DOPA LEVODOPA-EQUIVALENT DAILY DOSE (LEDD) (MG/DAY): 450
     Route: 065
  2. SIFROL [Suspect]
     Active Substance: PRAMIPEXOLE
     Indication: PARKINSON^S DISEASE
     Dosage: DOPAMINE AGONIST LEVODOPA-EQUIVALENT DAILY DOSE (MG/DAY): 141
     Route: 065

REACTIONS (8)
  - Apathy [Recovered/Resolved]
  - Anhedonia [Unknown]
  - Drug withdrawal syndrome [Unknown]
  - Dizziness [Unknown]
  - Hyperhidrosis [Unknown]
  - Fatigue [Unknown]
  - Orthostatic hypotension [Unknown]
  - Depression [Recovered/Resolved]
